FAERS Safety Report 5051135-4 (Version None)
Quarter: 2006Q3

REPORT INFORMATION
  Report Type: 
  Country: None (occurrence: None)
  Receive Date: 20060710
  Receipt Date: 20060630
  Transmission Date: 20061208
  Serious: Yes (Life-Threatening, Hospitalization, Other)
  Sender: FDA-Public Use
  Company Number: 2006082261

PATIENT
  Sex: Male
  Weight: 93.8946 kg

DRUGS (3)
  1. CELEBREX [Suspect]
     Indication: POLYP COLORECTAL
     Dosage: (200 MG, UNKNOWN)
  2. RESTORIL [Concomitant]
  3. DIAZEPAM [Concomitant]

REACTIONS (15)
  - BLINDNESS TRANSIENT [None]
  - COORDINATION ABNORMAL [None]
  - DIZZINESS [None]
  - DYSPHAGIA [None]
  - EYE PAIN [None]
  - FALL [None]
  - GLAUCOMA [None]
  - HAEMOGLOBIN DECREASED [None]
  - HEADACHE [None]
  - LARGE INTESTINAL HAEMORRHAGE [None]
  - LOSS OF CONSCIOUSNESS [None]
  - RECTAL HAEMORRHAGE [None]
  - TONGUE DISORDER [None]
  - VISION BLURRED [None]
  - VISUAL DISTURBANCE [None]
